FAERS Safety Report 9109191 (Version 1)
Quarter: 2013Q1

REPORT INFORMATION
  Report Type: Spontaneous
  Country: SE (occurrence: SE)
  Receive Date: 20130222
  Receipt Date: 20130222
  Transmission Date: 20140127
  Serious: Yes (Other)
  Sender: FDA-Public Use
  Company Number: SE-AMGEN-SWESP2013004785

PATIENT
  Age: 51 Year
  Sex: Female

DRUGS (3)
  1. ENBREL [Suspect]
     Indication: PSORIASIS
     Dosage: 50 MG, WEEKLY
     Route: 058
     Dates: start: 20130103, end: 20130129
  2. ENALAPRIL [Concomitant]
     Indication: PRODUCT USED FOR UNKNOWN INDICATION
     Dosage: 10 MG, 1X/DAY
  3. SALURES [Concomitant]
     Indication: PRODUCT USED FOR UNKNOWN INDICATION
     Dosage: 2.5 MG, 1X/DAY

REACTIONS (9)
  - Myalgia [Not Recovered/Not Resolved]
  - Fatigue [Not Recovered/Not Resolved]
  - Dermatitis [Not Recovered/Not Resolved]
  - Depressed mood [Unknown]
  - Blister [Unknown]
  - Local swelling [Recovered/Resolved]
  - Feeling abnormal [Unknown]
  - Arthralgia [Unknown]
  - General physical health deterioration [Unknown]
